FAERS Safety Report 4374864-4 (Version None)
Quarter: 2004Q2

REPORT INFORMATION
  Report Type: 
  Country: None (occurrence: None)
  Receive Date: 20040602
  Receipt Date: 20031001
  Transmission Date: 20050107
  Serious: Yes (Hospitalization)
  Sender: FDA-Public Use
  Company Number: US-JNJFOC-20031006086

PATIENT
  Sex: Female
  Weight: 104.3273 kg

DRUGS (6)
  1. PROPULSID [Suspect]
     Dosage: 10 MG, 3 IN 1 DAY
  2. ELAVIL [Concomitant]
  3. PREMPRO 14/14 [Concomitant]
  4. PEPCID [Concomitant]
  5. RELAFIN (NABUMETONE) [Concomitant]
  6. VITAMINS (VITAMINS) [Concomitant]

REACTIONS (4)
  - ABDOMINAL PAIN [None]
  - COLONIC POLYP [None]
  - INTRADUCTAL PAPILLOMA OF BREAST [None]
  - MEDICATION ERROR [None]
